FAERS Safety Report 19591763 (Version 3)
Quarter: 2021Q4

REPORT INFORMATION
  Report Type: Report from Study
  Country: FR (occurrence: FR)
  Receive Date: 20210721
  Receipt Date: 20211220
  Transmission Date: 20220303
  Serious: Yes (Hospitalization)
  Sender: FDA-Public Use
  Company Number: FR-ABBVIE-21P-056-3839002-00

PATIENT
  Age: 24 Year
  Sex: Male
  Weight: 92 kg

DRUGS (11)
  1. UPADACITINIB [Suspect]
     Active Substance: UPADACITINIB
     Indication: Dermatitis atopic
     Route: 048
     Dates: start: 20200525, end: 20210322
  2. UPADACITINIB [Suspect]
     Active Substance: UPADACITINIB
     Route: 048
     Dates: start: 20210322, end: 20210611
  3. UPADACITINIB [Suspect]
     Active Substance: UPADACITINIB
     Route: 050
     Dates: start: 20210621
  4. BETAMETHASONE VALERATE [Concomitant]
     Active Substance: BETAMETHASONE VALERATE
     Indication: Dermatitis atopic
     Dates: start: 20200914
  5. BILASTINE [Concomitant]
     Active Substance: BILASTINE
     Indication: Rhinitis allergic
     Dates: start: 20170101
  6. BILASTINE [Concomitant]
     Active Substance: BILASTINE
     Indication: Keratitis
  7. BILASTINE [Concomitant]
     Active Substance: BILASTINE
     Indication: Conjunctivitis
  8. RHINOCORT [Concomitant]
     Active Substance: BUDESONIDE
     Indication: Rhinitis allergic
     Dates: start: 20200914
  9. COLLYRE (CICLOSPORINE) [Concomitant]
     Indication: Allergic keratitis
     Dates: start: 20210208
  10. CYCLOSPORINE [Concomitant]
     Active Substance: CYCLOSPORINE
     Indication: Dermatitis atopic
     Dates: start: 201907, end: 202012
  11. DIPROSONE [Concomitant]
     Active Substance: BETAMETHASONE DIPROPIONATE
     Indication: Product used for unknown indication
     Dates: start: 20190101

REACTIONS (4)
  - Herpes ophthalmic [Recovered/Resolved]
  - Drug ineffective [Unknown]
  - Dermatitis atopic [Not Recovered/Not Resolved]
  - Allergic keratitis [Not Recovered/Not Resolved]

NARRATIVE: CASE EVENT DATE: 20210308
